FAERS Safety Report 6814710-X (Version None)
Quarter: 2010Q3

REPORT INFORMATION
  Report Type: 
  Country: None (occurrence: None)
  Receive Date: 20100702
  Receipt Date: 20100618
  Transmission Date: 20110219
  Serious: Yes (Other)
  Sender: FDA-Public Use
  Company Number: DE-CEPHALON-2010003030

PATIENT
  Age: 70 Year
  Sex: Female

DRUGS (1)
  1. TREANDA [Suspect]
     Indication: HODGKIN'S DISEASE
     Route: 042

REACTIONS (3)
  - BLOOD CREATINE PHOSPHOKINASE INCREASED [None]
  - PNEUMONITIS [None]
  - RENAL FAILURE [None]
